FAERS Safety Report 6954717-5 (Version None)
Quarter: 2010Q3

REPORT INFORMATION
  Report Type: 
  Country: None (occurrence: None)
  Receive Date: 20100829
  Receipt Date: 20080811
  Transmission Date: 20110219
  Serious: No
  Sender: FDA-Public Use
  Company Number: US-ALLERGAN-0809926US

PATIENT
  Age: 52 Year
  Sex: Female

DRUGS (1)
  1. FML [Suspect]
     Indication: ANTIINFLAMMATORY THERAPY
     Dosage: UNK, UNKNOWN
     Route: 047

REACTIONS (1)
  - EYE DISORDER [None]
